FAERS Safety Report 11422977 (Version 1)
Quarter: 2015Q3

REPORT INFORMATION
  Report Type: Spontaneous
  Country: IT (occurrence: IT)
  Receive Date: 20150827
  Receipt Date: 20150827
  Transmission Date: 20151125
  Serious: Yes (Hospitalization)
  Sender: FDA-Public Use
  Company Number: IT-JNJFOC-20150818189

PATIENT
  Age: 26 Year
  Sex: Female

DRUGS (1)
  1. SERENASE [Suspect]
     Active Substance: HALOPERIDOL
     Indication: ANXIETY
     Route: 048
     Dates: start: 20141212, end: 20141212

REACTIONS (5)
  - Muscle rigidity [Recovered/Resolved]
  - Photophobia [Recovered/Resolved]
  - Restlessness [Recovered/Resolved]
  - Product use issue [Unknown]
  - Drug abuse [Unknown]

NARRATIVE: CASE EVENT DATE: 20141212
